FAERS Safety Report 9716242 (Version 1)
Quarter: 2013Q4

REPORT INFORMATION
  Report Type: Spontaneous
  Country: US (occurrence: None)
  Receive Date: 20131126
  Receipt Date: 20131126
  Transmission Date: 20140711
  Serious: Yes (Hospitalization)
  Sender: FDA-Public Use
  Company Number: None

PATIENT
  Age: 75 Year
  Sex: Male
  Weight: 90.9 kg

DRUGS (1)
  1. CLOPIDOGREL [Suspect]
     Indication: THROMBOSIS PROPHYLAXIS
     Dosage: 75 MG, EVERY DAY, PO
     Route: 048
     Dates: start: 20131025, end: 20131030

REACTIONS (6)
  - Fatigue [None]
  - Gastric haemorrhage [None]
  - Haemoglobin decreased [None]
  - Ulcer haemorrhage [None]
  - Post procedural complication [None]
  - Portal hypertensive gastropathy [None]
